FAERS Safety Report 4796529-7 (Version None)
Quarter: 2005Q3

REPORT INFORMATION
  Report Type: 
  Country: None (occurrence: None)
  Receive Date: 20050916
  Receipt Date: 20041130
  Transmission Date: 20060218
  Serious: Yes (Hospitalization, Other)
  Sender: FDA-Public Use
  Company Number: US-JNJFOC-20041001854

PATIENT
  Age: 37 Year
  Sex: Female

DRUGS (2)
  1. TOPAMAX [Suspect]
     Indication: HEADACHE
     Dosage: 25 MG, ORAL; SEE IMAGE
     Route: 048
  2. IBUPROFEN [Concomitant]

REACTIONS (4)
  - ANGLE CLOSURE GLAUCOMA [None]
  - INTRAOCULAR PRESSURE INCREASED [None]
  - NAUSEA [None]
  - VISUAL ACUITY REDUCED [None]
